FAERS Safety Report 13084716 (Version 3)
Quarter: 2017Q1

REPORT INFORMATION
  Report Type: Report from Study
  Country: US (occurrence: US)
  Receive Date: 20170104
  Receipt Date: 20170215
  Transmission Date: 20170428
  Serious: Yes (Other)
  Sender: FDA-Public Use
  Company Number: US-GILEAD-2017-0251584

PATIENT
  Age: 72 Year
  Sex: Male

DRUGS (16)
  1. AMBRISENTAN [Suspect]
     Active Substance: AMBRISENTAN
     Dosage: 5 MG, QD
     Route: 065
     Dates: start: 20160922, end: 20170111
  2. TYLENOL [Concomitant]
     Active Substance: ACETAMINOPHEN
  3. DILTIAZEM CD [Concomitant]
     Active Substance: DILTIAZEM
  4. AMBRISENTAN [Suspect]
     Active Substance: AMBRISENTAN
     Indication: PULMONARY ARTERIAL HYPERTENSION
     Dosage: 10 MG, QD
     Route: 065
     Dates: start: 20130307
  5. MOBIC [Concomitant]
     Active Substance: MELOXICAM
  6. ADCIRCA [Concomitant]
     Active Substance: TADALAFIL
  7. COUMADIN [Concomitant]
     Active Substance: WARFARIN SODIUM
  8. PATANOL [Concomitant]
     Active Substance: OLOPATADINE HYDROCHLORIDE
  9. CYCLOBENZAPRINE [Concomitant]
     Active Substance: CYCLOBENZAPRINE
  10. ATENOLOL. [Concomitant]
     Active Substance: ATENOLOL
  11. ZETIA [Concomitant]
     Active Substance: EZETIMIBE
  12. POTASSIUM [Concomitant]
     Active Substance: POTASSIUM
  13. ASPIRIN                            /00002701/ [Concomitant]
     Active Substance: ASPIRIN
  14. LISINOPRIL. [Concomitant]
     Active Substance: LISINOPRIL
  15. FUROSEMIDE. [Concomitant]
     Active Substance: FUROSEMIDE
  16. LIPITOR [Concomitant]
     Active Substance: ATORVASTATIN CALCIUM

REACTIONS (4)
  - Pneumonia [Unknown]
  - Dyspnoea exertional [Not Recovered/Not Resolved]
  - Dyspnoea [Not Recovered/Not Resolved]
  - Accidental overdose [Recovered/Resolved]

NARRATIVE: CASE EVENT DATE: 20170124
